FAERS Safety Report 9375270 (Version 2)
Quarter: 2014Q2

REPORT INFORMATION
  Report Type: Report from Study
  Country: US (occurrence: US)
  Receive Date: 20130628
  Receipt Date: 20140604
  Transmission Date: 20141212
  Serious: Yes (Hospitalization)
  Sender: FDA-Public Use
  Company Number: US-GLAXOSMITHKLINE-Z0020016B

PATIENT
  Age: 56 Year
  Sex: Male
  Weight: 161 kg

DRUGS (4)
  1. OFATUMUMAB [Suspect]
     Indication: B-CELL LYMPHOMA
     Dosage: 1000MG CYCLIC
     Route: 042
     Dates: start: 20130606
  2. BENDAMUSTINE [Suspect]
     Indication: B-CELL LYMPHOMA
     Dosage: 90MGM2 CYCLIC
     Route: 042
     Dates: start: 20130530
  3. METFORMIN [Concomitant]
     Indication: DIABETES MELLITUS
     Dosage: 500MG TWICE PER DAY
     Route: 048
     Dates: start: 20121219
  4. HYDRALAZINE HCL + HYDROCHLOROTHIAZIDE + RESERPINE [Concomitant]
     Indication: HYPERTENSION
     Dosage: 37.5MG PER DAY
     Route: 048

REACTIONS (1)
  - Tumour lysis syndrome [Recovered/Resolved]
